FAERS Safety Report 8624825-1 (Version None)
Quarter: 2012Q3

REPORT INFORMATION
  Report Type: 
  Country: None (occurrence: None)
  Receive Date: 20120827
  Receipt Date: 20120817
  Transmission Date: 20120928
  Serious: Yes (Hospitalization, Other)
  Sender: FDA-Public Use
  Company Number: US-ABBOTT-11P-163-0704592-00

PATIENT
  Sex: Male
  Weight: 84.898 kg

DRUGS (15)
  1. FLORASTOR [Concomitant]
     Indication: COLITIS
  2. ONDANSETRON HYDROCHLORIDE [Concomitant]
     Indication: NAUSEA
     Dates: start: 20091201, end: 20100201
  3. EFFEXOR [Concomitant]
     Indication: DEPRESSION
     Dates: start: 20071024
  4. MERCAPTOPURINE [Concomitant]
     Indication: COLITIS
     Dates: start: 20080912, end: 20090109
  5. MERCAPTOPURINE [Concomitant]
     Dates: start: 20090109
  6. CANASA [Concomitant]
     Indication: COLITIS
     Dates: start: 20080911
  7. ROWASA [Concomitant]
     Indication: COLITIS
     Dates: start: 20071130
  8. ALLOPURINOL [Concomitant]
     Indication: COLITIS
     Dates: start: 20090302
  9. HUMIRA [Suspect]
     Indication: CROHN'S DISEASE
     Route: 058
     Dates: start: 20090902, end: 20091217
  10. LIALDA [Concomitant]
     Dates: start: 20081027
  11. CORTIFOAM [Concomitant]
     Indication: COLITIS
     Dates: start: 20080527
  12. ANAMANTLE HC [Concomitant]
     Indication: COLITIS
     Dosage: 3/2.5%
     Dates: start: 20090401
  13. FLORASTOR [Concomitant]
     Indication: DIARRHOEA
     Dates: start: 20071106
  14. XIFAXAN [Concomitant]
     Indication: DIARRHOEA
     Dates: start: 20080527
  15. LIALDA [Concomitant]
     Indication: COLITIS
     Dates: start: 20080126, end: 20081026

REACTIONS (1)
  - COLITIS [None]
